FAERS Safety Report 7104295-5 (Version None)
Quarter: 2010Q4

REPORT INFORMATION
  Report Type: 
  Country: None (occurrence: None)
  Receive Date: 20101115
  Receipt Date: 20100621
  Transmission Date: 20110411
  Serious: No
  Sender: FDA-Public Use
  Company Number: US-ALLERGAN-1008064US

PATIENT
  Sex: Female

DRUGS (2)
  1. BOTOX COSMETIC [Suspect]
     Indication: SKIN WRINKLING
     Dosage: 65 UNITS, SINGLE
     Route: 030
     Dates: start: 20080717, end: 20080717
  2. BOTOX COSMETIC [Suspect]
     Dosage: 55 UNITS, SINGLE
     Route: 030
     Dates: start: 20100518, end: 20100518

REACTIONS (5)
  - DRY MOUTH [None]
  - FACIAL PARESIS [None]
  - LETHARGY [None]
  - MUSCULAR WEAKNESS [None]
  - URINARY INCONTINENCE [None]
